FAERS Safety Report 9787444 (Version 2)
Quarter: 2014Q1

REPORT INFORMATION
  Report Type: Spontaneous
  Country: US (occurrence: US)
  Receive Date: 20131230
  Receipt Date: 20140113
  Transmission Date: 20141002
  Serious: No
  Sender: FDA-Public Use
  Company Number: US-BIOGENIDEC-2013BI123911

PATIENT
  Age: 34 Year
  Sex: Female

DRUGS (2)
  1. TYSABRI [Suspect]
     Indication: MULTIPLE SCLEROSIS
     Route: 042
     Dates: start: 20130628
  2. BENADRYL [Concomitant]
     Indication: PREMEDICATION

REACTIONS (4)
  - Hypoaesthesia [Not Recovered/Not Resolved]
  - Fatigue [Unknown]
  - Flushing [Unknown]
  - Nausea [Unknown]
